FAERS Safety Report 6443395-X (Version None)
Quarter: 2009Q4

REPORT INFORMATION
  Report Type: 
  Country: None (occurrence: None)
  Receive Date: 20091117
  Receipt Date: 20090731
  Transmission Date: 20100525
  Serious: Yes (Other)
  Sender: FDA-Public Use
  Company Number: US-PFIZER INC-2004111434

PATIENT
  Sex: Female

DRUGS (3)
  1. PREMARIN [Suspect]
     Indication: HORMONE REPLACEMENT THERAPY
     Dosage: UNK
     Route: 065
     Dates: start: 19930101, end: 20040101
  2. HYZAAR [Concomitant]
     Indication: HYPERTENSION
     Dosage: UNK
  3. HYZAAR [Concomitant]
     Indication: DIURETIC THERAPY

REACTIONS (1)
  - OVARIAN CANCER [None]
